FAERS Safety Report 5561983-X (Version None)
Quarter: 2007Q4

REPORT INFORMATION
  Report Type: 
  Country: None (occurrence: None)
  Receive Date: 20071215
  Receipt Date: 20071003
  Transmission Date: 20080405
  Serious: No
  Sender: FDA-Public Use
  Company Number: US-AMGEN-KDL246109

PATIENT
  Sex: Female

DRUGS (1)
  1. ENBREL [Suspect]
     Indication: RHEUMATOID ARTHRITIS
     Route: 058
     Dates: start: 19990514

REACTIONS (10)
  - ABDOMINAL PAIN [None]
  - ARTHROPOD BITE [None]
  - CONTUSION [None]
  - DIVERTICULUM [None]
  - DYSPEPSIA [None]
  - HELICOBACTER INFECTION [None]
  - INFLAMMATORY BOWEL DISEASE [None]
  - STAPHYLOCOCCAL SKIN INFECTION [None]
  - SUBCUTANEOUS NODULE [None]
  - WHITE BLOOD CELL COUNT DECREASED [None]
